FAERS Safety Report 4672667-4 (Version None)
Quarter: 2005Q2

REPORT INFORMATION
  Report Type: 
  Country: None (occurrence: None)
  Receive Date: 20050524
  Receipt Date: 20050131
  Transmission Date: 20051028
  Serious: Yes (Other)
  Sender: FDA-Public Use
  Company Number: US-JNJFOC-20050200619

PATIENT
  Sex: Male

DRUGS (8)
  1. REMICADE [Suspect]
     Indication: RHEUMATOID ARTHRITIS
     Route: 042
  2. VIOXX [Concomitant]
  3. ACIPHEX [Concomitant]
  4. SYNTHROID [Concomitant]
  5. METHOTREXATE [Concomitant]
     Route: 049
  6. FOLIC ACID [Concomitant]
  7. PRINIVIL [Concomitant]
  8. TOPROL-XL [Concomitant]

REACTIONS (1)
  - MALIGNANT MELANOMA [None]
